FAERS Safety Report 24603023 (Version 1)
Quarter: 2024Q4

REPORT INFORMATION
  Report Type: Spontaneous
  Country: US (occurrence: None)
  Receive Date: 20241108
  Receipt Date: 20241108
  Transmission Date: 20250114
  Serious: Yes (unspecified)
  Sender: Public
  Company Number: None

PATIENT
  Age: 70 Year
  Sex: Male
  Weight: 76.95 kg

DRUGS (2)
  1. TESTOSTERONE CYPIONATE [Suspect]
     Active Substance: TESTOSTERONE CYPIONATE
     Dosage: 300 MG EVERY 2 WEEKS INTRAMUSCULAR ?
     Route: 030
  2. PFIZER-BIONTECH COVID-19 VACCINE [Suspect]
     Active Substance: TOZINAMERAN

REACTIONS (6)
  - Paraesthesia oral [None]
  - Chest discomfort [None]
  - Hyperhidrosis [None]
  - Pyrexia [None]
  - Headache [None]
  - Pain [None]

NARRATIVE: CASE EVENT DATE: 20241108
